FAERS Safety Report 8818379 (Version 5)
Quarter: 2013Q2

REPORT INFORMATION
  Report Type: Report from Study
  Country: FR (occurrence: FR)
  Receive Date: 20121001
  Receipt Date: 20130422
  Transmission Date: 20140414
  Serious: Yes (Hospitalization)
  Sender: FDA-Public Use
  Company Number: FR-ROCHE-1127891

PATIENT
  Age: 78 Year
  Sex: Female
  Weight: 83 kg

DRUGS (19)
  1. RITUXIMAB [Suspect]
     Indication: B-CELL LYMPHOMA
     Dosage: MOST RECENT DOSE 715 MG RECEIVED ON: 10/SEP/2012
     Route: 042
     Dates: start: 20120910
  2. CYCLOPHOSPHAMIDE [Suspect]
     Indication: B-CELL LYMPHOMA
     Route: 065
  3. VINCRISTINE [Suspect]
     Indication: B-CELL LYMPHOMA
     Route: 065
  4. PREDNISONE [Suspect]
     Indication: B-CELL LYMPHOMA
     Route: 065
  5. AUGMENTIN [Concomitant]
     Indication: PYREXIA
     Route: 065
     Dates: start: 20120911, end: 201209
  6. AREDIA [Concomitant]
     Indication: HYPERCALCAEMIA
     Route: 065
     Dates: start: 20120910, end: 20120910
  7. ALDACTONE [Concomitant]
     Indication: HYPERTENSION
  8. METFORMIN [Concomitant]
     Indication: TYPE 2 DIABETES MELLITUS
     Route: 065
  9. DIAMICRON [Concomitant]
  10. HYZAAR [Concomitant]
     Indication: HYPERTENSION
  11. FLODIL [Concomitant]
     Indication: HYPERTENSION
  12. PARIET [Concomitant]
     Indication: GASTROOESOPHAGEAL REFLUX DISEASE
     Route: 065
     Dates: start: 20121021
  13. FORADIL [Concomitant]
     Indication: ASTHMA
     Route: 065
     Dates: start: 2010
  14. SYMBICORT [Concomitant]
     Indication: ASTHMA
     Route: 065
     Dates: start: 2012
  15. NORMACOL (FRANCE) [Concomitant]
     Indication: CONSTIPATION
     Dosage: ENEMA
     Route: 065
     Dates: start: 20120919, end: 20120924
  16. XYZALL [Concomitant]
     Route: 065
  17. PERFALGAN [Concomitant]
     Indication: HYPERTHERMIA
     Route: 065
     Dates: start: 20120910
  18. ZOPHREN [Concomitant]
     Indication: NAUSEA
     Route: 065
     Dates: start: 20120911
  19. MOTILIUM (FRANCE) [Concomitant]
     Indication: NAUSEA
     Route: 065
     Dates: start: 20120911

REACTIONS (2)
  - Malaise [Recovered/Resolved]
  - Constipation [Recovered/Resolved]
